FAERS Safety Report 6254168-5 (Version None)
Quarter: 2009Q2

REPORT INFORMATION
  Report Type: 
  Country: None (occurrence: None)
  Receive Date: 20090630
  Receipt Date: 20090630
  Transmission Date: 20091009
  Serious: Yes (Other)
  Sender: FDA-Public Use
  Company Number: None

PATIENT
  Age: 57 Year
  Sex: Female
  Weight: 78.9259 kg

DRUGS (1)
  1. TRAMADOL HCL [Suspect]
     Indication: COLITIS
     Dosage: ONE EVERY 4 HRS. PO
     Route: 048
     Dates: start: 20080102, end: 20090630

REACTIONS (5)
  - DEPRESSION [None]
  - DRUG DEPENDENCE [None]
  - EUPHORIC MOOD [None]
  - PAIN [None]
  - WITHDRAWAL SYNDROME [None]
